FAERS Safety Report 18290155 (Version 1)
Quarter: 2020Q3

REPORT INFORMATION
  Report Type: Spontaneous
  Country: US (occurrence: US)
  Receive Date: 20200921
  Receipt Date: 20200921
  Transmission Date: 20201103
  Serious: Yes (Death, Hospitalization)
  Sender: FDA-Public Use
  Company Number: US-PURDUE-USA-2020-0157218

PATIENT
  Age: 67 Year
  Sex: Male

DRUGS (2)
  1. OXYCODONE HYDROCHLORIDE (SIMILAR TO NDA 22?272) [Suspect]
     Active Substance: OXYCODONE HYDROCHLORIDE
     Indication: PAIN
     Dosage: UNK
     Route: 048
     Dates: end: 20120607
  2. OXYCONTIN [Suspect]
     Active Substance: OXYCODONE HYDROCHLORIDE
     Indication: PAIN
     Dosage: UNK
     Route: 048
     Dates: start: 20100301, end: 20120607

REACTIONS (14)
  - Unevaluable event [Recovered/Resolved]
  - Decreased interest [Recovered/Resolved]
  - Dehydration [Fatal]
  - Patient elopement [Recovered/Resolved]
  - Hip arthroplasty [Recovered/Resolved]
  - Nausea [Unknown]
  - Diarrhoea [Unknown]
  - Lethargy [Recovered/Resolved]
  - Quality of life decreased [Recovered/Resolved]
  - Feeling abnormal [Recovered/Resolved]
  - Glassy eyes [Recovered/Resolved]
  - Vomiting [Unknown]
  - Gastroenteritis [Fatal]
  - Back pain [Recovered/Resolved]

NARRATIVE: CASE EVENT DATE: 20120606
